FAERS Safety Report 9565102 (Version 1)
Quarter: 2013Q3

REPORT INFORMATION
  Report Type: Spontaneous
  Country: US (occurrence: US)
  Receive Date: 20130930
  Receipt Date: 20130930
  Transmission Date: 20140515
  Serious: Yes (Other)
  Sender: FDA-Public Use
  Company Number: US-PFIZER INC-2013277810

PATIENT
  Age: 72 Year
  Sex: Female
  Weight: 95.24 kg

DRUGS (1)
  1. LYRICA [Suspect]
     Indication: DIABETIC NEUROPATHY
     Dosage: 600 MG (BY TAKING TWO CAPSULES OF 300MG), 2X/DAY
     Route: 048
     Dates: end: 20130924

REACTIONS (4)
  - Coronary artery occlusion [Unknown]
  - Chronic obstructive pulmonary disease [Unknown]
  - Emphysema [Unknown]
  - Pain [Unknown]
